FAERS Safety Report 7381556-6 (Version None)
Quarter: 2011Q1

REPORT INFORMATION
  Report Type: 
  Country: None (occurrence: None)
  Receive Date: 20110329
  Receipt Date: 20110318
  Transmission Date: 20110831
  Serious: Yes (Other)
  Sender: FDA-Public Use
  Company Number: US-PERRIGO-11US002347

PATIENT

DRUGS (1)
  1. GUAIFENESIN 20 MG/ML TUSSIN CS 310 [Suspect]
     Indication: PRODUCT USED FOR UNKNOWN INDICATION
     Dosage: WHOLE BOTTLE, SINGLE
     Route: 048
     Dates: start: 20110318, end: 20110318

REACTIONS (1)
  - INTENTIONAL OVERDOSE [None]
